FAERS Safety Report 5044993-0 (Version None)
Quarter: 2006Q2

REPORT INFORMATION
  Report Type: 
  Country: None (occurrence: None)
  Receive Date: 20060601
  Receipt Date: 20060317
  Transmission Date: 20061013
  Serious: No
  Sender: FDA-Public Use
  Company Number: US200603005187

PATIENT
  Age: 59 Year
  Sex: Female

DRUGS (8)
  1. CYMBALTA [Suspect]
     Indication: PAIN
     Dosage: 60 MG, DAILY (1/D)
     Dates: start: 20050825
  2. ULTRAM [Concomitant]
  3. CYCLOBENZAPRINE HCL [Concomitant]
  4. XANAX /USA/ (ALRAZOLAM) [Concomitant]
  5. TEMAZEPAM [Concomitant]
  6. HYDROCHLOROTHIAZIDE [Concomitant]
  7. NEXIUM /UNK/ (ESOMEPRAZOLE) [Concomitant]
  8. DICYCLOMINE HCL [Concomitant]

REACTIONS (4)
  - BLOOD PRESSURE INCREASED [None]
  - PARAESTHESIA [None]
  - SWELLING [None]
  - WEIGHT INCREASED [None]
